FAERS Safety Report 5762049-6 (Version None)
Quarter: 2008Q2

REPORT INFORMATION
  Report Type: 
  Country: None (occurrence: None)
  Receive Date: 20080603
  Receipt Date: 20080527
  Transmission Date: 20081010
  Serious: Yes (Hospitalization)
  Sender: FDA-Public Use
  Company Number: AMI0006800

PATIENT
  Age: 68 Year
  Sex: Male

DRUGS (4)
  1. EDECRIN [Suspect]
     Dosage: 50MG PO QD
     Route: 048
     Dates: end: 20061213
  2. PANTOPRAZOLE SODIUM [Concomitant]
  3. SPIRONOLACTONE [Concomitant]
  4. PERINDOPRIL [Concomitant]

REACTIONS (1)
  - RENAL FAILURE ACUTE [None]
